FAERS Safety Report 6325941-X (Version None)
Quarter: 2009Q3

REPORT INFORMATION
  Report Type: 
  Country: None (occurrence: None)
  Receive Date: 20090824
  Receipt Date: 20090812
  Transmission Date: 20100115
  Serious: Yes (Hospitalization)
  Sender: FDA-Public Use
  Company Number: JP-PFIZER INC-2009185681

PATIENT
  Age: 69 Year

DRUGS (8)
  1. RIFABUTIN [Suspect]
     Indication: MYCOBACTERIUM AVIUM COMPLEX INFECTION
     Dosage: 150 MG, 1X/DAY
     Route: 048
     Dates: start: 20090219, end: 20090308
  2. RIFABUTIN [Suspect]
  3. BIOFERMIN R [Concomitant]
     Dosage: 3 G, 1X/DAY
     Route: 048
     Dates: start: 20090219, end: 20090101
  4. MUCOSTA [Concomitant]
     Dosage: 300 MG, 1X/DAY
     Route: 048
     Dates: start: 20090219, end: 20090101
  5. TOCLASE [Concomitant]
     Dosage: 90 MG, 1X/DAY
     Route: 048
     Dates: start: 20090219, end: 20090101
  6. CLARITH [Concomitant]
     Dosage: 400 MG, 1X/DAY
     Route: 048
     Dates: start: 20090219, end: 20090101
  7. ESANBUTOL [Concomitant]
     Dosage: 125 MG, 1X/DAY
     Dates: start: 20090219, end: 20090101
  8. RIFAMPICIN [Concomitant]
     Dosage: UNK
     Dates: start: 20060317, end: 20090218

REACTIONS (2)
  - DECREASED APPETITE [None]
  - PYREXIA [None]
